FAERS Safety Report 7865882-X (Version None)
Quarter: 2011Q4

REPORT INFORMATION
  Report Type: 
  Country: None (occurrence: None)
  Receive Date: 20111028
  Receipt Date: 20110315
  Transmission Date: 20120403
  Serious: No
  Sender: FDA-Public Use
  Company Number: US-GLAXOSMITHKLINE-A0918298A

PATIENT
  Age: 76 Year
  Sex: Female

DRUGS (11)
  1. XANAX [Concomitant]
  2. VENTOLIN HFA [Concomitant]
  3. PREVACID [Concomitant]
  4. CARTIA XT [Concomitant]
  5. QUINAPRIL [Concomitant]
  6. FLONASE [Concomitant]
  7. ASPIRIN [Concomitant]
  8. PATANOL [Concomitant]
  9. ADVAIR DISKUS 100/50 [Suspect]
     Indication: CHRONIC OBSTRUCTIVE PULMONARY DISEASE
     Dosage: 1PUFF TWICE PER DAY
     Route: 055
     Dates: start: 20101201
  10. XALATAN [Concomitant]
  11. SYNTHROID [Concomitant]

REACTIONS (3)
  - WEIGHT INCREASED [None]
  - DYSPHONIA [None]
  - OROPHARYNGEAL PAIN [None]
